FAERS Safety Report 21349477 (Version 1)
Quarter: 2022Q3

REPORT INFORMATION
  Report Type: Spontaneous
  Country: US (occurrence: None)
  Receive Date: 20220916
  Receipt Date: 20220916
  Transmission Date: 20221026
  Serious: No
  Sender: FDA-Public Use
  Company Number: None

PATIENT
  Sex: 0

DRUGS (2)
  1. HYOSCYAMINE [Suspect]
     Active Substance: HYOSCYAMINE
  2. HYOSCYAMINE SULFATE [Suspect]
     Active Substance: HYOSCYAMINE SULFATE

REACTIONS (4)
  - Product packaging confusion [None]
  - Product appearance confusion [None]
  - Product commingling [None]
  - Intercepted product selection error [None]

NARRATIVE: CASE EVENT DATE: 20220910
